FAERS Safety Report 16119148 (Version 1)
Quarter: 2019Q1

REPORT INFORMATION
  Report Type: Spontaneous
  Country: FR (occurrence: FR)
  Receive Date: 20190326
  Receipt Date: 20190326
  Transmission Date: 20190418
  Serious: Yes (Other)
  Sender: FDA-Public Use
  Company Number: FR-PFIZER INC-2019123671

PATIENT
  Age: 18 Year
  Sex: Male
  Weight: 50 kg

DRUGS (3)
  1. BACTRIM [Concomitant]
     Active Substance: SULFAMETHOXAZOLE\TRIMETHOPRIM
     Dosage: 3 MG, WEEKLY
  2. ACTINOMYCIN D [Concomitant]
     Active Substance: DACTINOMYCIN
     Dosage: 2 MG, EVERY 3 WEEKS
  3. VINCRISTINE HOSPIRA [Suspect]
     Active Substance: VINCRISTINE
     Dosage: 2 MG, EVERY 3 WEEKS [EVERY 21 DAYS]
     Route: 041
     Dates: start: 20180419, end: 20180917

REACTIONS (1)
  - Neuropathy peripheral [Recovered/Resolved]

NARRATIVE: CASE EVENT DATE: 2018
